FAERS Safety Report 6641002-4 (Version None)
Quarter: 2010Q1

REPORT INFORMATION
  Report Type: 
  Country: None (occurrence: None)
  Receive Date: 20100318
  Receipt Date: 20100308
  Transmission Date: 20100710
  Serious: Yes (Hospitalization, Other)
  Sender: FDA-Public Use
  Company Number: B0637672A

PATIENT
  Age: 48 Year
  Sex: Female

DRUGS (6)
  1. PAXIL [Suspect]
     Indication: DEPRESSION
     Dosage: 80MG SINGLE DOSE
     Route: 048
  2. UNKNOWN DRUG [Suspect]
     Dosage: 60G SINGLE DOSE
     Route: 048
  3. BROTIZOLAM [Suspect]
     Dosage: 3MG SINGLE DOSE
     Route: 048
  4. BIPERIDEN HYDROCHLORIDE [Suspect]
     Dosage: 27MG SINGLE DOSE
     Route: 048
  5. NITRAZEPAM [Suspect]
     Dosage: 135MG PER DAY
     Route: 048
  6. LORAZEPAM [Suspect]
     Dosage: 13.5MG SINGLE DOSE
     Route: 048

REACTIONS (6)
  - ALTERED STATE OF CONSCIOUSNESS [None]
  - BEZOAR [None]
  - DRUG DEPENDENCE [None]
  - DRUG TOXICITY [None]
  - INTENTIONAL OVERDOSE [None]
  - PNEUMONIA [None]
